FAERS Safety Report 14741700 (Version 1)
Quarter: 2018Q2

REPORT INFORMATION
  Report Type: Spontaneous
  Country: US (occurrence: US)
  Receive Date: 20180404
  Receipt Date: 20180404
  Transmission Date: 20180711
  Serious: No
  Sender: FDA-Public Use
  Company Number: None

PATIENT
  Age: 61 Year
  Sex: Female

DRUGS (1)
  1. IBRANCE [Suspect]
     Active Substance: PALBOCICLIB

REACTIONS (5)
  - Pain in extremity [None]
  - Neuralgia [None]
  - Skin exfoliation [None]
  - Stomatitis [None]
  - Disease progression [None]

NARRATIVE: CASE EVENT DATE: 20180329
